FAERS Safety Report 6820406-0 (Version None)
Quarter: 2010Q3

REPORT INFORMATION
  Report Type: 
  Country: None (occurrence: None)
  Receive Date: 20100707
  Receipt Date: 20100628
  Transmission Date: 20110219
  Serious: Yes (Hospitalization)
  Sender: FDA-Public Use
  Company Number: AT-ABBOTT-10P-009-0642435-00

PATIENT
  Sex: Male
  Weight: 92.5 kg

DRUGS (1)
  1. ZEMPLAR [Suspect]
     Indication: HYPERPARATHYROIDISM
     Dates: start: 20090501

REACTIONS (2)
  - MUSCLE ABSCESS [None]
  - STAPHYLOCOCCAL SEPSIS [None]
